FAERS Safety Report 5255930-8 (Version None)
Quarter: 2007Q1

REPORT INFORMATION
  Report Type: 
  Country: None (occurrence: None)
  Receive Date: 20061204
  Receipt Date: 20060818
  Transmission Date: 20070707
  Serious: No
  Sender: FDA-Public Use
  Company Number: 2006-BP-09989PF

PATIENT
  Age: 78 Year
  Sex: Female
  Weight: 68.04 kg

DRUGS (7)
  1. SPIRIVA [Suspect]
     Dosage: 18 MCG (18 MCG, 1 IN 1 D), IH
     Route: 055
     Dates: start: 20060808
  2. CHANTIX [Suspect]
     Indication: EX-SMOKER
     Dosage: 2 MG (1 MG, TWICE DAILY), PO
     Route: 048
     Dates: start: 20060808
  3. ADVAIR (SERETIDE) [Concomitant]
  4. CALCIUM (CALCIUM) [Concomitant]
  5. ZOCOR [Concomitant]
  6. SYNTHROID [Concomitant]
  7. CENTRUM SILVER (CENTRUM SILVER /01292501/) [Concomitant]

REACTIONS (2)
  - HEADACHE [None]
  - NAUSEA [None]
